FAERS Safety Report 8543469-3 (Version None)
Quarter: 2012Q3

REPORT INFORMATION
  Report Type: 
  Country: None (occurrence: None)
  Receive Date: 20120727
  Receipt Date: 20120724
  Transmission Date: 20120928
  Serious: Yes (Death, Other)
  Sender: FDA-Public Use
  Company Number: PHHY2012ZA064140

PATIENT
  Sex: Male

DRUGS (1)
  1. SANDOSTATIN [Suspect]
     Indication: PANCREATIC NEUROENDOCRINE TUMOUR

REACTIONS (2)
  - DEATH [None]
  - NEOPLASM MALIGNANT [None]
